FAERS Safety Report 8125985-1 (Version None)
Quarter: 2012Q1

REPORT INFORMATION
  Report Type: 
  Country: None (occurrence: None)
  Receive Date: 20120209
  Receipt Date: 20120201
  Transmission Date: 20120608
  Serious: Yes (Hospitalization)
  Sender: FDA-Public Use
  Company Number: CA-BAXTER-2011BH040141

PATIENT
  Age: 77 Year
  Sex: Female

DRUGS (2)
  1. GAMMAGARD S/D [Suspect]
     Indication: IMMUNODEFICIENCY COMMON VARIABLE
     Route: 042
     Dates: start: 20111115, end: 20111115
  2. GAMMAGARD S/D [Suspect]
     Route: 065
     Dates: start: 20030901

REACTIONS (5)
  - TRANSFUSION-RELATED ACUTE LUNG INJURY [None]
  - BLOOD PRESSURE INCREASED [None]
  - VOMITING [None]
  - ATRIAL FIBRILLATION [None]
  - NAUSEA [None]
